FAERS Safety Report 11052018 (Version 1)
Quarter: 2015Q2

REPORT INFORMATION
  Report Type: Spontaneous
  Country: US (occurrence: None)
  Receive Date: 20150420
  Receipt Date: 20150420
  Transmission Date: 20150821
  Serious: No
  Sender: FDA-Public Use
  Company Number: None

PATIENT
  Age: 53 Year
  Sex: Male

DRUGS (1)
  1. LITHIUM. [Suspect]
     Active Substance: LITHIUM
     Indication: MOOD SWINGS
     Dosage: 1200MG, QHS, ORAL
     Route: 048
     Dates: end: 20141021

REACTIONS (2)
  - Polydipsia [None]
  - Polyuria [None]

NARRATIVE: CASE EVENT DATE: 20141021
